FAERS Safety Report 11232314 (Version 1)
Quarter: 2015Q2

REPORT INFORMATION
  Report Type: Spontaneous
  Country: US (occurrence: None)
  Receive Date: 20150617
  Receipt Date: 20150617
  Transmission Date: 20150821
  Serious: No
  Sender: FDA-Public Use
  Company Number: 2014TASUS000439

PATIENT
  Age: 67 Year
  Sex: Female
  Weight: 69.5 kg

DRUGS (9)
  1. EVISTA [Concomitant]
     Active Substance: RALOXIFENE HYDROCHLORIDE
  2. CALCIUM CITRATE [Concomitant]
     Active Substance: CALCIUM CITRATE
  3. VITAMIN D3 [Concomitant]
     Active Substance: CHOLECALCIFEROL
  4. SYNTHROID [Concomitant]
     Active Substance: LEVOTHYROXINE SODIUM
  5. MAGNESIUM [Concomitant]
     Active Substance: MAGNESIUM
  6. FISH OIL (COD-LIVER OIL) [Concomitant]
  7. HETLIOZ [Suspect]
     Active Substance: TASIMELTEON
     Indication: CIRCADIAN RHYTHM SLEEP DISORDER
     Route: 048
     Dates: start: 201404
  8. VAGIFEM (ESTRADIOL) [Concomitant]
  9. SUPER B COMPLEX (VITAMIN B COMPLEX) [Concomitant]

REACTIONS (2)
  - Headache [None]
  - Dry mouth [None]

NARRATIVE: CASE EVENT DATE: 20140627
